FAERS Safety Report 12194419 (Version 1)
Quarter: 2016Q1

REPORT INFORMATION
  Report Type: Spontaneous
  Country: DE (occurrence: DE)
  Receive Date: 20160321
  Receipt Date: 20160321
  Transmission Date: 20160526
  Serious: Yes (Other)
  Sender: FDA-Public Use
  Company Number: DE-SUN PHARMACEUTICAL INDUSTRIES LTD-2016RR-113574

PATIENT

DRUGS (12)
  1. CITALOPRAM [Suspect]
     Active Substance: CITALOPRAM HYDROBROMIDE
     Indication: MIGRAINE PROPHYLAXIS
     Dosage: 40 MG, DAILY, 0-38 GESTATIONAL WEEKS
     Route: 064
     Dates: start: 20141218, end: 20150910
  2. NOVAMINSULFON [Concomitant]
     Active Substance: METAMIZOLE
     Indication: PAIN
     Dosage: 3000 MG, DAILY (UP TO 2000), 0-7.1 GESTATIONAL WEEKS
     Route: 064
     Dates: start: 20141218, end: 20150206
  3. FOLSAURE [Concomitant]
     Active Substance: FOLIC ACID
     Indication: PROPHYLAXIS OF NEURAL TUBE DEFECT
     Dosage: 7.1 GESTATIONAL WEEK
     Route: 064
     Dates: start: 20150206, end: 20150206
  4. TRAMADOL. [Concomitant]
     Active Substance: TRAMADOL
     Indication: PAIN
     Dosage: 100 MG, TID, 0-9 GESTATIONAL WEEKS
     Route: 064
  5. PREDNISOLON [Concomitant]
     Active Substance: PREDNISOLONE
     Indication: SJOGREN^S SYNDROME
     Dosage: 5 MG, QD, 0-38 GESTATIONAL WEEKS
     Route: 064
     Dates: start: 20141218, end: 20150910
  6. ASCOTOP [Concomitant]
     Active Substance: ZOLMITRIPTAN
     Indication: MIGRAINE
     Dosage: 2.5 MG, QD, 0-7.1 GESTATIONAL WEEKS
     Route: 064
     Dates: start: 20141218, end: 20150206
  7. PARACETAMOL [Concomitant]
     Active Substance: ACETAMINOPHEN
     Indication: TONSILLITIS
     Dosage: 1000 MG, QD, UNKNOWN TRIMESTER
     Route: 064
  8. VINGANTOLETTEN [Concomitant]
     Indication: VITAMIN D DEFICIENCY
     Dosage: 1000 IU, QD, 0-38 GESTATIONAL WEEKS
     Route: 064
     Dates: start: 20141218, end: 20150910
  9. PANTOPRAZOLE [Concomitant]
     Active Substance: PANTOPRAZOLE SODIUM
     Indication: GASTROOESOPHAGEAL REFLUX DISEASE
     Dosage: 40 MG, DAILY, 0-38 GESTATIONAL WEEKS
     Route: 064
     Dates: start: 20141218, end: 20150910
  10. PROTHYRID [Concomitant]
     Active Substance: LEVOTHYROXINE SODIUM
     Indication: HYPOTHYROIDISM
     Dosage: 10 ?G, QD, 0-38 GESTATIONAL WEEKS
     Route: 064
     Dates: start: 20141218, end: 20150910
  11. QUENSYL [Concomitant]
     Active Substance: HYDROXYCHLOROQUINE
     Indication: SJOGREN^S SYNDROME
     Dosage: 200 MG, QD, 0-38 GESTATIONAL WEEKS
     Route: 064
     Dates: start: 20141218, end: 20150910
  12. ISLA-MOOS [Concomitant]
     Indication: TONSILLITIS
     Dosage: 20-22 GESTATIONAL WEEK
     Route: 064

REACTIONS (3)
  - Myoclonus [Recovered/Resolved]
  - Temperature regulation disorder [Recovered/Resolved]
  - Respiratory disorder neonatal [Recovered/Resolved]

NARRATIVE: CASE EVENT DATE: 20150910
